FAERS Safety Report 11340288 (Version 1)
Quarter: 2015Q3

REPORT INFORMATION
  Report Type: Spontaneous
  Country: US (occurrence: None)
  Receive Date: 20150629
  Receipt Date: 20150629
  Transmission Date: 20151125
  Serious: No
  Sender: FDA-Public Use
  Company Number: A-US2014-107315

PATIENT
  Age: 53 Year
  Sex: Female

DRUGS (7)
  1. OPSUMIT [Suspect]
     Active Substance: MACITENTAN
     Indication: PULMONARY ARTERIAL HYPERTENSION
     Route: 048
     Dates: start: 20140428
  2. DILTIAZEM HCL [Concomitant]
     Active Substance: DILTIAZEM HYDROCHLORIDE
  3. REMODULIN [Concomitant]
     Active Substance: TREPROSTINIL
  4. ADCIRCA [Concomitant]
     Active Substance: TADALAFIL
  5. ASPIRIN (ACETYLSALICYLIC ACID) [Concomitant]
     Active Substance: ASPIRIN
  6. XARELTO [Concomitant]
     Active Substance: RIVAROXABAN
  7. VELETRI [Suspect]
     Active Substance: EPOPROSTENOL
     Indication: PULMONARY ARTERIAL HYPERTENSION
     Dosage: 53 NG/KG, ORAL
     Route: 048
     Dates: start: 20141017

REACTIONS (8)
  - Arthralgia [None]
  - Diarrhoea [None]
  - Abdominal pain upper [None]
  - Vomiting [None]
  - Flushing [None]
  - Pain in jaw [None]
  - Respiratory tract congestion [None]
  - Nausea [None]
